FAERS Safety Report 8298384-X (Version None)
Quarter: 2012Q2

REPORT INFORMATION
  Report Type: 
  Country: None (occurrence: None)
  Receive Date: 20120419
  Receipt Date: 20120413
  Transmission Date: 20120825
  Serious: No
  Sender: FDA-Public Use
  Company Number: US-B.I. PHARMACEUTICALS,INC./RIDGEFIELD-2012-BP-07039BP

PATIENT
  Age: 60 Year
  Sex: Female

DRUGS (7)
  1. NOVOLOG [Concomitant]
     Indication: DIABETES MELLITUS
  2. LANTUS [Concomitant]
     Indication: DIABETES MELLITUS
  3. SPIRIVA [Suspect]
     Indication: ASTHMA
     Dosage: 18 MCG
     Route: 055
     Dates: start: 20120411
  4. PRILOSEC [Concomitant]
  5. SINGULAIR [Concomitant]
     Indication: ASTHMA
  6. TIZANIDINE HCL [Concomitant]
     Indication: MUSCLE TIGHTNESS
  7. LOSARTAN [Concomitant]
     Indication: PROPHYLAXIS

REACTIONS (1)
  - ANXIETY [None]
